FAERS Safety Report 7587721-7 (Version None)
Quarter: 2011Q3

REPORT INFORMATION
  Report Type: 
  Country: None (occurrence: None)
  Receive Date: 20110704
  Receipt Date: 20110621
  Transmission Date: 20111222
  Serious: Yes (Hospitalization)
  Sender: FDA-Public Use
  Company Number: US-ELI_LILLY_AND_COMPANY-US201105007551

PATIENT
  Sex: Female

DRUGS (15)
  1. METOPROLOL TARTRATE [Concomitant]
  2. WARFARIN SODIUM [Concomitant]
  3. LISINOPRIL [Concomitant]
  4. METAMUCIL-2 [Concomitant]
  5. MV [Concomitant]
  6. SENOKOT [Concomitant]
  7. ELAVIL [Concomitant]
  8. XANAX [Concomitant]
  9. FORTEO [Suspect]
     Indication: OSTEOPOROSIS
     Dosage: UNK, UNKNOWN
     Route: 065
  10. CALCIUM CARBONATE [Concomitant]
  11. SIMVASTATIN [Concomitant]
  12. KLONOPIN [Concomitant]
  13. PREDNISONE [Concomitant]
  14. PERCOCET [Concomitant]
  15. LASIX [Concomitant]

REACTIONS (1)
  - MENTAL STATUS CHANGES [None]
